FAERS Safety Report 23047406 (Version 1)
Quarter: 2023Q4

REPORT INFORMATION
  Report Type: Spontaneous
  Country: US (occurrence: US)
  Receive Date: 20231010
  Receipt Date: 20231010
  Transmission Date: 20240109
  Serious: Yes (Hospitalization, Other)
  Sender: FDA-Public Use
  Company Number: US-AUROBINDO-AUR-APL-2023-062276

PATIENT
  Age: 29 Year
  Sex: Female

DRUGS (1)
  1. BUPROPION [Suspect]
     Active Substance: BUPROPION
     Indication: Product used for unknown indication
     Dosage: 8 GRAM
     Route: 048

REACTIONS (5)
  - Cardiotoxicity [Recovered/Resolved]
  - Status epilepticus [Recovered/Resolved]
  - Ventricular tachycardia [Unknown]
  - Hypotension [Unknown]
  - Overdose [Unknown]
